FAERS Safety Report 10423032 (Version 2)
Quarter: 2015Q1

REPORT INFORMATION
  Report Type: Spontaneous
  Country: JP (occurrence: JP)
  Receive Date: 20140902
  Receipt Date: 20150210
  Transmission Date: 20150720
  Serious: Yes (Other)
  Sender: FDA-Public Use
  Company Number: JP-AMGEN-JPNSP2014066175

PATIENT
  Age: 59 Year
  Sex: Male

DRUGS (9)
  1. PACLITAXEL. [Concomitant]
     Active Substance: PACLITAXEL
     Indication: MALIGNANT NEOPLASM OF UNKNOWN PRIMARY SITE
     Dosage: 310 MG, QD
     Route: 042
     Dates: start: 20140124, end: 20140421
  2. CARBOPLATIN. [Concomitant]
     Active Substance: CARBOPLATIN
     Indication: MALIGNANT NEOPLASM OF UNKNOWN PRIMARY SITE
     Dosage: 370 MG, QD
     Route: 042
     Dates: start: 20140124, end: 20140421
  3. PREDONINE [Concomitant]
     Active Substance: PREDNISOLONE\PREDNISOLONE ACETATE\PREDNISOLONE SODIUM SUCCINATE
     Indication: MICROSCOPIC POLYANGIITIS
     Dosage: 10 MG, QD
     Route: 048
  4. NEORAL [Concomitant]
     Active Substance: CYCLOSPORINE
     Indication: METASTASES TO BONE
  5. NEORAL [Concomitant]
     Active Substance: CYCLOSPORINE
     Indication: MICROSCOPIC POLYANGIITIS
     Dosage: 75 MG, BID
     Route: 048
     Dates: end: 20140117
  6. RANMARK [Suspect]
     Active Substance: DENOSUMAB
     Indication: METASTASES TO BONE
     Dosage: 120 MG, UNK
     Route: 058
     Dates: start: 20140124
  7. PREDONINE [Concomitant]
     Active Substance: PREDNISOLONE\PREDNISOLONE ACETATE\PREDNISOLONE SODIUM SUCCINATE
     Indication: METASTASES TO BONE
  8. TS-1 [Concomitant]
     Active Substance: GIMERACIL\OTERACIL\TEGAFUR
     Indication: MALIGNANT NEOPLASM OF UNKNOWN PRIMARY SITE
     Dosage: 50 MG, BID
     Route: 048
     Dates: start: 20140702
  9. BONALON [Concomitant]
     Active Substance: ALENDRONATE SODIUM
     Indication: OSTEOPOROSIS
     Dosage: 35 MG, QD
     Route: 048
     Dates: end: 20140118

REACTIONS (1)
  - Osteonecrosis of jaw [Not Recovered/Not Resolved]

NARRATIVE: CASE EVENT DATE: 20140704
